FAERS Safety Report 9424297 (Version 1)
Quarter: 2013Q3

REPORT INFORMATION
  Report Type: Spontaneous
  Country: JP (occurrence: None)
  Receive Date: 20130724
  Receipt Date: 20130724
  Transmission Date: 20140515
  Serious: Yes (Hospitalization)
  Sender: FDA-Public Use
  Company Number: SYM-2013-06296

PATIENT
  Age: 50 Year
  Sex: Female

DRUGS (3)
  1. METRONIDAZOLE [Suspect]
     Indication: PSEUDOMEMBRANOUS COLITIS
     Dates: end: 2009
  2. ANASTROZOLE [Suspect]
     Indication: PRODUCT USED FOR UNKNOWN INDICATION
  3. ANTIBIOTICS (ANTIBIOTICS) [Concomitant]

REACTIONS (11)
  - Colitis ulcerative [None]
  - Pseudomembranous colitis [None]
  - Off label use [None]
  - Urinary tract infection [None]
  - Drug ineffective [None]
  - Anaemia [None]
  - Thrombocytosis [None]
  - Lymphocyte morphology abnormal [None]
  - Occult blood positive [None]
  - Clostridium difficile colitis [None]
  - Cytomegalovirus colitis [None]
